FAERS Safety Report 4937087-3 (Version None)
Quarter: 2006Q1

REPORT INFORMATION
  Report Type: 
  Country: None (occurrence: None)
  Receive Date: 20060302
  Receipt Date: 20060220
  Transmission Date: 20060701
  Serious: Yes (Other)
  Sender: FDA-Public Use
  Company Number: IT200602000400

PATIENT
  Age: 63 Year
  Sex: Male

DRUGS (6)
  1. GEMZAR [Suspect]
     Indication: LUNG NEOPLASM MALIGNANT
     Dosage: 1000 MG/M2, OTHER, INTRAVENOUS
     Route: 042
     Dates: start: 20060111, end: 20060118
  2. CISPLATIN [Concomitant]
  3. PLAVIX [Concomitant]
  4. ONDANSETRON [Concomitant]
  5. METHYLPREDNISOLONE [Concomitant]
  6. LANSOPRAZOLE [Concomitant]

REACTIONS (1)
  - PLATELET COUNT INCREASED [None]
